FAERS Safety Report 19805139 (Version 1)
Quarter: 2021Q3

REPORT INFORMATION
  Report Type: Spontaneous
  Country: US (occurrence: US)
  Receive Date: 20210908
  Receipt Date: 20210908
  Transmission Date: 20211014
  Serious: Yes (Other)
  Sender: FDA-Public Use
  Company Number: US-SA-2021SA290494

PATIENT
  Age: 32 Year
  Sex: Female

DRUGS (3)
  1. NORMAL SALINE [Suspect]
     Active Substance: SODIUM CHLORIDE
     Indication: INTERSECTION SYNDROME
     Dosage: 3 ML
     Route: 042
  2. METHYLPREDNISOLONE. [Suspect]
     Active Substance: METHYLPREDNISOLONE
     Indication: INTERSECTION SYNDROME
     Dosage: 40 MG
     Route: 042
  3. LIDOCAINE. [Suspect]
     Active Substance: LIDOCAINE
     Indication: INTERSECTION SYNDROME
     Dosage: 1 ML
     Route: 042

REACTIONS (7)
  - Bursitis [Recovered/Resolved]
  - Arthralgia [Recovered/Resolved]
  - Erythema [Recovered/Resolved]
  - Joint swelling [Recovered/Resolved]
  - Joint warmth [Recovered/Resolved]
  - Joint range of motion decreased [Recovered/Resolved]
  - Bursitis infective [Recovered/Resolved]
